FAERS Safety Report 5027095-9 (Version None)
Quarter: 2006Q2

REPORT INFORMATION
  Report Type: 
  Country: None (occurrence: None)
  Receive Date: 20060609
  Receipt Date: 20060530
  Transmission Date: 20061013
  Serious: Yes (Other)
  Sender: FDA-Public Use
  Company Number: SUSI-2006-00532

PATIENT
  Sex: Male

DRUGS (1)
  1. ADDERALL 15 [Suspect]
     Indication: INTENTIONAL DRUG MISUSE
     Dates: start: 20030101

REACTIONS (3)
  - DRUG ABUSER [None]
  - FEELING ABNORMAL [None]
  - INTENTIONAL DRUG MISUSE [None]
